FAERS Safety Report 5655609-4 (Version None)
Quarter: 2008Q1

REPORT INFORMATION
  Report Type: 
  Country: None (occurrence: None)
  Receive Date: 20080307
  Receipt Date: 20080303
  Transmission Date: 20080703
  Serious: Yes (Death, Life-Threatening, Other)
  Sender: FDA-Public Use
  Company Number: HU-BRISTOL-MYERS SQUIBB COMPANY-14099568

PATIENT
  Age: 50 Year
  Sex: Female

DRUGS (2)
  1. ESTRADIOL [Suspect]
     Indication: VAGINAL HAEMORRHAGE
  2. HEPARIN SODIUM [Suspect]

REACTIONS (5)
  - ANGIOSARCOMA [None]
  - DISSEMINATED INTRAVASCULAR COAGULATION [None]
  - HAEMOTHORAX [None]
  - HEPATIC HAEMANGIOMA RUPTURE [None]
  - PULMONARY EMBOLISM [None]
